FAERS Safety Report 18194755 (Version 1)
Quarter: 2020Q3

REPORT INFORMATION
  Report Type: Spontaneous
  Country: US (occurrence: US)
  Receive Date: 20200825
  Receipt Date: 20200825
  Transmission Date: 20201103
  Serious: Yes (Death, Hospitalization, Other)
  Sender: FDA-Public Use
  Company Number: US-AMGEN-USASP2020134166

PATIENT
  Age: 73 Year
  Sex: Male

DRUGS (3)
  1. CISPLATIN. [Concomitant]
     Active Substance: CISPLATIN
     Indication: EPITHELIOID MESOTHELIOMA
     Dosage: UNK (21 DAYS CYCLE)
  2. BEVACIZUMAB. [Suspect]
     Active Substance: BEVACIZUMAB
     Indication: EPITHELIOID MESOTHELIOMA
     Dosage: UNK (21 DAYS CYCLE)
     Route: 065
  3. PEMETREXED. [Concomitant]
     Active Substance: PEMETREXED
     Indication: EPITHELIOID MESOTHELIOMA
     Dosage: UNK (21 DAYS CYCLE)

REACTIONS (5)
  - Renal infarct [Unknown]
  - Death [Fatal]
  - Mesothelioma malignant [Unknown]
  - Off label use [Unknown]
  - Intestinal perforation [Unknown]
